FAERS Safety Report 9275477 (Version 1)
Quarter: 2013Q2

REPORT INFORMATION
  Report Type: Spontaneous
  Country: US (occurrence: US)
  Receive Date: 20130507
  Receipt Date: 20130507
  Transmission Date: 20140414
  Serious: No
  Sender: FDA-Public Use
  Company Number: US-PFIZER INC-2013139003

PATIENT
  Sex: 0

DRUGS (1)
  1. XANAX XR [Suspect]
     Indication: PANIC ATTACK
     Dosage: 1 MG, 2X/DAY

REACTIONS (2)
  - Drug ineffective [Unknown]
  - Gastritis [Unknown]
